FAERS Safety Report 19801948 (Version 2)
Quarter: 2021Q3

REPORT INFORMATION
  Report Type: Report from Study
  Country: RU (occurrence: RU)
  Receive Date: 20210908
  Receipt Date: 20210922
  Transmission Date: 20211014
  Serious: Yes (Death, Hospitalization, Other)
  Sender: FDA-Public Use
  Company Number: RU-TEVA-2021-RU-1949891

PATIENT
  Age: 2 Year
  Sex: Male

DRUGS (4)
  1. METHOTREXATE. [Suspect]
     Active Substance: METHOTREXATE
     Indication: ACUTE LYMPHOCYTIC LEUKAEMIA
     Dosage: WEEKLY AT 12.5% DOSE.
     Route: 065
  2. METHOTREXATE. [Suspect]
     Active Substance: METHOTREXATE
     Indication: ACUTE LYMPHOCYTIC LEUKAEMIA
     Dosage: ADMINISTERED AT A REDUCED DOSE OF 75%
     Route: 065
     Dates: start: 20180102
  3. 6?MERCAPTOPURINE [Suspect]
     Active Substance: MERCAPTOPURINE
     Indication: ACUTE LYMPHOCYTIC LEUKAEMIA
     Dosage: ADMINISTERED AT A REDUCED DOSE OF 75%
     Route: 065
     Dates: start: 20180102
  4. 6?MERCAPTOPURINE [Suspect]
     Active Substance: MERCAPTOPURINE
     Indication: ACUTE LYMPHOCYTIC LEUKAEMIA
     Dosage: 12.5% DOSE EVERY OTHER DAY
     Route: 065

REACTIONS (10)
  - Mucosal haemorrhage [Unknown]
  - Neutropenia [Unknown]
  - Hypoalbuminaemia [Unknown]
  - Pancytopenia [Unknown]
  - Pneumonia [Unknown]
  - Multiple organ dysfunction syndrome [Fatal]
  - Stomatitis [Unknown]
  - Hypoproteinaemia [Unknown]
  - Anaemia [Unknown]
  - Respiratory failure [Unknown]

NARRATIVE: CASE EVENT DATE: 2018
